FAERS Safety Report 7216537-6 (Version None)
Quarter: 2011Q1

REPORT INFORMATION
  Report Type: 
  Country: None (occurrence: None)
  Receive Date: 20110109
  Receipt Date: 20110105
  Transmission Date: 20110831
  Serious: Yes (Other)
  Sender: FDA-Public Use
  Company Number: US-BRISTOL-MYERS SQUIBB COMPANY-15361694

PATIENT
  Age: 61 Year
  Sex: Female
  Weight: 77 kg

DRUGS (5)
  1. LEVOTHYROXINE SODIUM [Concomitant]
  2. ALLEGRA [Concomitant]
  3. SPRYCEL [Suspect]
     Indication: ACUTE MYELOID LEUKAEMIA
     Dosage: REDUCED TO 50MG BID THERAPY SINCE 2 YEARS AND 2 MONTHS
     Route: 048
     Dates: start: 20080801
  4. EFFEXOR [Concomitant]
  5. LASIX [Concomitant]
     Dosage: THERAPY:FOR ABOUT A WEEK

REACTIONS (2)
  - PLEURAL EFFUSION [None]
  - CARDIAC DISORDER [None]
